FAERS Safety Report 20763440 (Version 1)
Quarter: 2022Q2

REPORT INFORMATION
  Report Type: Spontaneous
  Country: US (occurrence: US)
  Receive Date: 20220428
  Receipt Date: 20220428
  Transmission Date: 20220720
  Serious: No
  Sender: FDA-Public Use
  Company Number: US-PFIZER INC-202200483500

PATIENT
  Age: 50 Year
  Sex: Female

DRUGS (1)
  1. IBRANCE [Suspect]
     Active Substance: PALBOCICLIB
     Dosage: 125 MG (ONE TIME SHE TOOK IT IN A TWO HOUR WINDOW)

REACTIONS (3)
  - Off label use [Unknown]
  - Mood altered [Unknown]
  - Loss of personal independence in daily activities [Unknown]
